FAERS Safety Report 8071667-4 (Version None)
Quarter: 2012Q1

REPORT INFORMATION
  Report Type: 
  Country: None (occurrence: None)
  Receive Date: 20120125
  Receipt Date: 20120118
  Transmission Date: 20120608
  Serious: Yes (Hospitalization, Other)
  Sender: FDA-Public Use
  Company Number: CZ-ABBOTT-12P-217-0889117-00

PATIENT
  Sex: Male
  Weight: 97 kg

DRUGS (8)
  1. METHOTREXATE [Concomitant]
     Indication: PRODUCT USED FOR UNKNOWN INDICATION
  2. OMEPRAZOLE [Concomitant]
     Indication: PRODUCT USED FOR UNKNOWN INDICATION
  3. PLAQUENIL [Concomitant]
     Indication: PRODUCT USED FOR UNKNOWN INDICATION
  4. PREDNISONE [Concomitant]
     Indication: PRODUCT USED FOR UNKNOWN INDICATION
  5. CALCIUM CARBONATE [Concomitant]
     Indication: PRODUCT USED FOR UNKNOWN INDICATION
  6. FOLIC ACID [Concomitant]
     Indication: PRODUCT USED FOR UNKNOWN INDICATION
  7. HUMIRA [Suspect]
     Indication: RHEUMATOID ARTHRITIS
     Route: 058
  8. PREDNISONE [Concomitant]

REACTIONS (10)
  - ASTHENIA [None]
  - FATIGUE [None]
  - TYPE 1 DIABETES MELLITUS [None]
  - WEIGHT DECREASED [None]
  - ARTHROPATHY [None]
  - BRONCHOPNEUMONIA [None]
  - PNEUMONIA KLEBSIELLA [None]
  - DECREASED APPETITE [None]
  - PLEURAL FIBROSIS [None]
  - INFECTIOUS PLEURAL EFFUSION [None]
